FAERS Safety Report 6771030-X (Version None)
Quarter: 2010Q2

REPORT INFORMATION
  Report Type: 
  Country: None (occurrence: None)
  Receive Date: 20100616
  Receipt Date: 20100604
  Transmission Date: 20101027
  Serious: Yes (Hospitalization)
  Sender: FDA-Public Use
  Company Number: GB-TEVA-236910ISR

PATIENT
  Sex: Female

DRUGS (3)
  1. NITROFURANTOIN [Suspect]
     Indication: BLADDER OPERATION
  2. CLOZAPINE [Suspect]
     Indication: BORDERLINE PERSONALITY DISORDER
     Route: 048
     Dates: start: 20051109, end: 20090101
  3. CLOZAPINE [Suspect]
     Route: 048
     Dates: start: 20100504, end: 20100507

REACTIONS (3)
  - CHEST PAIN [None]
  - HYPOTENSION [None]
  - TACHYCARDIA [None]
